FAERS Safety Report 6301335-8 (Version None)
Quarter: 2009Q3

REPORT INFORMATION
  Report Type: 
  Country: None (occurrence: None)
  Receive Date: 20090807
  Receipt Date: 20090731
  Transmission Date: 20100115
  Serious: Yes (Disabling, Other)
  Sender: FDA-Public Use
  Company Number: US-PFIZER INC-2005026813

PATIENT
  Sex: Female
  Weight: 79 kg

DRUGS (6)
  1. PROVERA [Suspect]
     Indication: HORMONE REPLACEMENT THERAPY
     Dosage: 2.5 MG, UNK
     Route: 048
     Dates: start: 19960528, end: 20021209
  2. PREMARIN [Suspect]
     Indication: HORMONE REPLACEMENT THERAPY
     Dosage: 0.625 MG, UNK
     Dates: start: 19960528, end: 20021209
  3. PREMARIN [Suspect]
     Dosage: 0.9 MG, UNK
     Dates: start: 19960528, end: 20021209
  4. PREMPRO [Suspect]
     Indication: HORMONE REPLACEMENT THERAPY
     Dates: start: 19960101, end: 20030101
  5. MEDROXYPROGESTERONE ACETATE [Suspect]
     Indication: HORMONE REPLACEMENT THERAPY
     Dosage: 2.5 MG, UNK
     Dates: start: 20000403, end: 20020626
  6. PREMARIN [Suspect]
     Dosage: UNK
     Route: 067
     Dates: start: 20020111

REACTIONS (1)
  - BREAST CANCER FEMALE [None]
